FAERS Safety Report 16404643 (Version 1)
Quarter: 2019Q2

REPORT INFORMATION
  Report Type: Spontaneous
  Country: US (occurrence: US)
  Receive Date: 20190501
  Receipt Date: 20190501
  Transmission Date: 20190711
  Serious: Yes (Hospitalization)
  Sender: FDA-Public Use
  Company Number: None

PATIENT
  Age: 7 Year
  Sex: Female
  Weight: 22.7 kg

DRUGS (3)
  1. DOXORUBICIN HYDROCHLORIDE. [Suspect]
     Active Substance: DOXORUBICIN HYDROCHLORIDE
     Dates: end: 20190421
  2. CISPLATIN. [Suspect]
     Active Substance: CISPLATIN
     Dates: end: 20190420
  3. ZINECARD [Suspect]
     Active Substance: DEXRAZOXANE HYDROCHLORIDE
     Dates: end: 20190421

REACTIONS (16)
  - Dehydration [None]
  - Pyrexia [None]
  - Platelet count decreased [None]
  - Hypokalaemia [None]
  - Packed red blood cell transfusion [None]
  - Neutropenia [None]
  - Anaemia [None]
  - Aspartate aminotransferase increased [None]
  - Hypoalbuminaemia [None]
  - Blood bicarbonate decreased [None]
  - Hyperglycaemia [None]
  - Hypocalcaemia [None]
  - Hypophagia [None]
  - Clostridium difficile colitis [None]
  - Feeding intolerance [None]
  - Neutrophil count decreased [None]

NARRATIVE: CASE EVENT DATE: 20190423
